FAERS Safety Report 6575933-0 (Version None)
Quarter: 2010Q1

REPORT INFORMATION
  Report Type: 
  Country: None (occurrence: None)
  Receive Date: 20100209
  Receipt Date: 20100127
  Transmission Date: 20100710
  Serious: Yes (Hospitalization, Other)
  Sender: FDA-Public Use
  Company Number: AT-ELI_LILLY_AND_COMPANY-AT200909001115

PATIENT
  Age: 79 Year
  Sex: Female

DRUGS (3)
  1. FORTEO [Suspect]
     Indication: OSTEOPOROSIS
     Dosage: UNK UNK, DAILY (1/D)
     Route: 058
     Dates: start: 20090715
  2. FORTEO [Suspect]
     Dosage: UNK, DAILY (1/D)
     Route: 058
     Dates: start: 20090101
  3. VITAMIN C [Concomitant]

REACTIONS (8)
  - BURNING SENSATION [None]
  - CEREBRAL CALCIFICATION [None]
  - DRY SKIN [None]
  - PRURITUS [None]
  - RASH [None]
  - SWELLING FACE [None]
  - ULCER [None]
  - VERTIGO [None]
